FAERS Safety Report 9924111 (Version 3)
Quarter: 2015Q2

REPORT INFORMATION
  Report Type: Spontaneous
  Country: JP (occurrence: JP)
  Receive Date: 20140226
  Receipt Date: 20150407
  Transmission Date: 20150821
  Serious: Yes (Death, Life-Threatening)
  Sender: FDA-Public Use
  Company Number: JP-009507513-1402JPN010870

PATIENT
  Age: 82 Year
  Sex: Male
  Weight: 52 kg

DRUGS (7)
  1. CANCIDAS [Suspect]
     Active Substance: CASPOFUNGIN ACETATE
     Indication: INTERSTITIAL LUNG DISEASE
     Dosage: 50 MG, QD
     Route: 041
     Dates: start: 20131016, end: 20131021
  2. SOL MELCORT [Concomitant]
     Active Substance: METHYLPREDNISOLONE
     Indication: INTERSTITIAL LUNG DISEASE
     Dosage: 1 G, QD
     Route: 051
     Dates: start: 20131019, end: 20131021
  3. BAKTAR [Concomitant]
     Active Substance: SULFAMETHOXAZOLE\TRIMETHOPRIM
     Indication: PNEUMONIA
     Dosage: 3 DOSAGE FORM, TID
     Route: 048
     Dates: start: 20131015, end: 20131021
  4. CANCIDAS [Suspect]
     Active Substance: CASPOFUNGIN ACETATE
     Indication: INTERSTITIAL LUNG DISEASE
     Dosage: 70 MG, QD
     Route: 041
     Dates: start: 20131015, end: 20131015
  5. MEROPEN [Concomitant]
     Active Substance: MEROPENEM
     Indication: PNEUMONIA
     Dosage: 1 G, BID
     Route: 051
     Dates: start: 20131015, end: 20131021
  6. PREDNISOLONE. [Concomitant]
     Active Substance: PREDNISOLONE
     Indication: INTERSTITIAL LUNG DISEASE
     Dosage: 30 MG, BID
     Route: 051
     Dates: start: 20131016, end: 20131018
  7. VANCOMYCIN [Concomitant]
     Active Substance: VANCOMYCIN
     Indication: PNEUMONIA
     Dosage: 1 G, QD
     Route: 051
     Dates: start: 20131017, end: 20131021

REACTIONS (2)
  - Renal disorder [Fatal]
  - Pneumonia [Fatal]

NARRATIVE: CASE EVENT DATE: 20131019
